FAERS Safety Report 18233170 (Version 2)
Quarter: 2020Q4

REPORT INFORMATION
  Report Type: Spontaneous
  Country: US (occurrence: US)
  Receive Date: 20200904
  Receipt Date: 20201023
  Transmission Date: 20210113
  Serious: Yes (Other)
  Sender: FDA-Public Use
  Company Number: US-ELI_LILLY_AND_COMPANY-US202008010445

PATIENT
  Age: 55 Year
  Sex: Female

DRUGS (1)
  1. BASAGLAR [Suspect]
     Active Substance: INSULIN GLARGINE
     Indication: PRODUCT USED FOR UNKNOWN INDICATION
     Dosage: UNK, UNKNOWN
     Route: 065
     Dates: start: 201910

REACTIONS (7)
  - Pain [Not Recovered/Not Resolved]
  - Blood glucose decreased [Recovered/Resolved]
  - Presyncope [Recovered/Resolved]
  - Drug effect faster than expected [Recovered/Resolved]
  - Insomnia [Unknown]
  - Hyperhidrosis [Unknown]
  - Stress [Not Recovered/Not Resolved]

NARRATIVE: CASE EVENT DATE: 20200820
